FAERS Safety Report 11948523 (Version 3)
Quarter: 2016Q1

REPORT INFORMATION
  Report Type: Report from Study
  Country: KE (occurrence: KE)
  Receive Date: 20160125
  Receipt Date: 20160219
  Transmission Date: 20160526
  Serious: Yes (Death)
  Sender: FDA-Public Use
  Company Number: PHHY2012KE009592

PATIENT
  Age: 49 Year
  Sex: Female
  Weight: 44.5 kg

DRUGS (2)
  1. GLIVEC [Suspect]
     Active Substance: IMATINIB MESYLATE
     Indication: CHRONIC MYELOID LEUKAEMIA
     Dosage: 800 MG, DAILY
     Route: 065
     Dates: start: 20060619, end: 20120131
  2. GLIVEC [Suspect]
     Active Substance: IMATINIB MESYLATE
     Dosage: 400 MG, DAILY
     Route: 065
     Dates: start: 20120131

REACTIONS (5)
  - White blood cell count decreased [Unknown]
  - Cough [Fatal]
  - Platelet count increased [Unknown]
  - Pulmonary tuberculosis [Fatal]
  - White blood cell count increased [Unknown]

NARRATIVE: CASE EVENT DATE: 20150603
